FAERS Safety Report 6457242-3 (Version None)
Quarter: 2009Q4

REPORT INFORMATION
  Report Type: 
  Country: None (occurrence: None)
  Receive Date: 20091125
  Receipt Date: 20091121
  Transmission Date: 20100525
  Serious: Yes (Hospitalization, Other)
  Sender: FDA-Public Use
  Company Number: US-BAYER-200927681NA

PATIENT
  Age: 56 Year
  Sex: Female
  Weight: 43 kg

DRUGS (10)
  1. SORAFENIB [Suspect]
     Indication: ADENOCARCINOMA PANCREAS
     Dosage: TOTAL DAILY DOSE: 800 MG  UNIT DOSE: 200 MG
     Route: 048
     Dates: start: 20090707, end: 20090720
  2. SORAFENIB [Suspect]
     Dosage: TOTAL DAILY DOSE: 400 MG  UNIT DOSE: 200 MG
     Route: 048
     Dates: start: 20090811, end: 20090817
  3. SORAFENIB [Suspect]
     Dosage: TOTAL DAILY DOSE: 400 MG  UNIT DOSE: 200 MG
     Route: 048
     Dates: start: 20090820, end: 20090908
  4. GEMCITABINE [Suspect]
     Indication: ADENOCARCINOMA PANCREAS
     Dosage: DAY 1, 8, 15
     Route: 042
     Dates: start: 20090707, end: 20090714
  5. GEMCITABINE [Suspect]
     Dosage: DAY 1, 8, 15
     Route: 042
     Dates: start: 20090803, end: 20090810
  6. GEMCITABINE [Suspect]
     Dosage: DAY 1, 8, 15
     Route: 042
     Dates: start: 20090824, end: 20090831
  7. MIDAZOLAM HCL [Concomitant]
     Route: 042
     Dates: start: 20090910, end: 20090910
  8. MEPERIDINE [Concomitant]
     Route: 042
     Dates: start: 20090910, end: 20090910
  9. GLUCAGON [Concomitant]
     Route: 042
     Dates: start: 20090910, end: 20090910
  10. PROMETHAZINE [Concomitant]
     Route: 042
     Dates: start: 20090910, end: 20090910

REACTIONS (5)
  - DIVERTICULITIS [None]
  - DYSPNOEA [None]
  - GASTROINTESTINAL PERFORATION [None]
  - HAEMOGLOBIN DECREASED [None]
  - THROMBOCYTOPENIA [None]
